FAERS Safety Report 7718202-5 (Version None)
Quarter: 2011Q3

REPORT INFORMATION
  Report Type: 
  Country: None (occurrence: None)
  Receive Date: 20110830
  Receipt Date: 20110818
  Transmission Date: 20111222
  Serious: Yes (Hospitalization)
  Sender: FDA-Public Use
  Company Number: PHHY2011BR31378

PATIENT
  Sex: Female

DRUGS (1)
  1. FORMOTEROL FUMARATE [Suspect]

REACTIONS (6)
  - BRONCHOSPASM [None]
  - FATIGUE [None]
  - ASTHMA [None]
  - OXYGEN SATURATION DECREASED [None]
  - PNEUMONIA [None]
  - DYSPNOEA [None]
